FAERS Safety Report 7057939-0 (Version None)
Quarter: 2010Q4

REPORT INFORMATION
  Report Type: 
  Country: None (occurrence: None)
  Receive Date: 20101021
  Receipt Date: 20101021
  Transmission Date: 20110411
  Serious: Yes (Other)
  Sender: FDA-Public Use
  Company Number: None

PATIENT
  Age: 59 Year
  Sex: Female
  Weight: 58.0604 kg

DRUGS (2)
  1. RECLAST [Suspect]
     Indication: OSTEOPOROSIS
     Dosage: 1 IV ONCE A YEAR IV
     Route: 042
     Dates: start: 20090418, end: 20090418
  2. RECLAST [Suspect]
     Indication: OSTEOPOROSIS
     Dosage: 1 IV ONCE A YEAR IV
     Route: 042
     Dates: start: 20100419, end: 20100419

REACTIONS (6)
  - ANGER [None]
  - ARTHRALGIA [None]
  - BONE PAIN [None]
  - NERVOUS SYSTEM DISORDER [None]
  - OEDEMA PERIPHERAL [None]
  - QUALITY OF LIFE DECREASED [None]
